FAERS Safety Report 21333302 (Version 1)
Quarter: 2022Q3

REPORT INFORMATION
  Report Type: Spontaneous
  Country: JP (occurrence: JP)
  Receive Date: 20220914
  Receipt Date: 20220914
  Transmission Date: 20221026
  Serious: Yes (Hospitalization)
  Sender: FDA-Public Use
  Company Number: JP-MSD-2209JPN001503J

PATIENT
  Age: 80 Year
  Sex: Male
  Weight: 59 kg

DRUGS (5)
  1. CUBICIN [Suspect]
     Active Substance: DAPTOMYCIN
     Indication: Pulmonary toxicity
     Dosage: 350 MILLIGRAM / DAY
     Route: 041
     Dates: start: 20220715, end: 20220720
  2. CUBICIN [Suspect]
     Active Substance: DAPTOMYCIN
     Indication: Interstitial lung disease
  3. VIDAZA [Suspect]
     Active Substance: AZACITIDINE
     Indication: Myelodysplastic syndrome
     Dosage: 100 MILLIGRAM
     Route: 041
     Dates: start: 20220713, end: 20220713
  4. CEFAZOLIN SODIUM [Concomitant]
     Active Substance: CEFAZOLIN SODIUM
     Indication: Infection prophylaxis
     Dosage: 2 GRAM / DAY
     Route: 065
     Dates: start: 20220712
  5. CEFEPIME HYDROCHLORIDE [Concomitant]
     Active Substance: CEFEPIME HYDROCHLORIDE
     Indication: Febrile neutropenia
     Dosage: 2 GRAM / DAY
     Route: 065
     Dates: start: 20220713

REACTIONS (2)
  - Pulmonary toxicity [Recovering/Resolving]
  - Interstitial lung disease [Recovering/Resolving]

NARRATIVE: CASE EVENT DATE: 20220713
